FAERS Safety Report 15007004 (Version 2)
Quarter: 2019Q1

REPORT INFORMATION
  Report Type: Spontaneous
  Country: US (occurrence: US)
  Receive Date: 20180613
  Receipt Date: 20190320
  Transmission Date: 20190417
  Serious: Yes (Hospitalization, Other)
  Sender: FDA-Public Use
  Company Number: US-JNJFOC-20180611434

PATIENT
  Age: 62 Year
  Sex: Female

DRUGS (3)
  1. INVOKANA [Suspect]
     Active Substance: CANAGLIFLOZIN
     Indication: TYPE 2 DIABETES MELLITUS
     Route: 048
     Dates: start: 20150128
  2. INVOKANA [Suspect]
     Active Substance: CANAGLIFLOZIN
     Indication: TYPE 2 DIABETES MELLITUS
     Route: 048
     Dates: start: 20170314
  3. INVOKANA [Suspect]
     Active Substance: CANAGLIFLOZIN
     Indication: TYPE 2 DIABETES MELLITUS
     Route: 048
     Dates: start: 20150930

REACTIONS (7)
  - Osteomyelitis [Unknown]
  - Skin ulcer [Unknown]
  - Cellulitis [Unknown]
  - Foot deformity [Unknown]
  - Limb amputation [Unknown]
  - Metatarsal excision [Unknown]
  - Sepsis [Unknown]

NARRATIVE: CASE EVENT DATE: 201505
